FAERS Safety Report 23396995 (Version 3)
Quarter: 2024Q2

REPORT INFORMATION
  Report Type: Report from Study
  Country: CO (occurrence: CO)
  Receive Date: 20240112
  Receipt Date: 20240405
  Transmission Date: 20240716
  Serious: Yes (Hospitalization)
  Sender: FDA-Public Use
  Company Number: CO-ASTELLAS-2024US001075

PATIENT
  Sex: Male

DRUGS (1)
  1. TACROLIMUS [Suspect]
     Active Substance: TACROLIMUS
     Indication: Renal transplant
     Dosage: 8 MG, ONCE DAILY (1MG X 3 CAPSULES + 5MG X 1 CAPSULE)
     Route: 048
     Dates: start: 20231102

REACTIONS (1)
  - Blood glucose abnormal [Recovering/Resolving]
